FAERS Safety Report 6659488-8 (Version None)
Quarter: 2010Q1

REPORT INFORMATION
  Report Type: 
  Country: None (occurrence: None)
  Receive Date: 20100330
  Receipt Date: 20091218
  Transmission Date: 20100710
  Serious: Yes (Disabling)
  Sender: FDA-Public Use
  Company Number: DE-JNJFOC-20090606217

PATIENT
  Age: 39 Year
  Sex: Male

DRUGS (3)
  1. TAVANIC [Suspect]
     Indication: GENITOURINARY TRACT INFECTION
     Route: 048
  2. TAVANIC [Suspect]
     Indication: UROGENITAL DISORDER
     Route: 048
  3. TAVANIC [Suspect]
     Indication: PROSTATITIS
     Route: 048

REACTIONS (5)
  - ARTHRALGIA [None]
  - MUSCLE SPASMS [None]
  - TENDON PAIN [None]
  - TENDONITIS [None]
  - TENOSYNOVITIS [None]
